FAERS Safety Report 24261173 (Version 2)
Quarter: 2024Q3

REPORT INFORMATION
  Report Type: Spontaneous
  Country: MX (occurrence: MX)
  Receive Date: 20240829
  Receipt Date: 20240917
  Transmission Date: 20241017
  Serious: Yes (Other)
  Sender: ROCHE
  Company Number: MX-ROCHE-10000066176

PATIENT
  Age: 33 Year
  Sex: Male
  Weight: 70 kg

DRUGS (5)
  1. SATRALIZUMAB [Suspect]
     Active Substance: SATRALIZUMAB
     Indication: Neuromyelitis optica spectrum disorder
     Dosage: DOSE AND FREQUENCY WERE NOT REPORTED
     Route: 058
     Dates: start: 202405
  2. SATRALIZUMAB [Suspect]
     Active Substance: SATRALIZUMAB
     Dosage: DOSE AND FREQUENCY WERE NOT REPORTED
     Route: 058
  3. SATRALIZUMAB [Suspect]
     Active Substance: SATRALIZUMAB
     Route: 058
     Dates: start: 202402
  4. OMEPRAZOLE [Concomitant]
     Active Substance: OMEPRAZOLE
     Route: 048
     Dates: start: 202409
  5. MOTILIUM [Concomitant]
     Active Substance: DOMPERIDONE
     Route: 048
     Dates: start: 202409

REACTIONS (5)
  - Myelitis [Recovering/Resolving]
  - Suspected counterfeit product [Unknown]
  - Peripheral paralysis [Recovered/Resolved with Sequelae]
  - Ill-defined disorder [Not Recovered/Not Resolved]
  - Syphilis [Recovering/Resolving]

NARRATIVE: CASE EVENT DATE: 20240801
